FAERS Safety Report 4889356-3 (Version None)
Quarter: 2006Q1

REPORT INFORMATION
  Report Type: 
  Country: None (occurrence: None)
  Receive Date: 20060120
  Receipt Date: 20060116
  Transmission Date: 20060701
  Serious: Yes (Hospitalization)
  Sender: FDA-Public Use
  Company Number: 200512440BWH

PATIENT
  Age: 43 Year
  Sex: Female

DRUGS (2)
  1. AVELOX [Suspect]
     Indication: PNEUMONIA
     Dosage: ORAL
     Route: 048
     Dates: start: 20051101, end: 20051105
  2. IBUPROFEN [Concomitant]

REACTIONS (4)
  - ASTHENIA [None]
  - DIPLEGIA [None]
  - INFECTION [None]
  - NEUROPATHY PERIPHERAL [None]
